FAERS Safety Report 5574964-7 (Version None)
Quarter: 2007Q4

REPORT INFORMATION
  Report Type: 
  Country: None (occurrence: None)
  Receive Date: 20071227
  Receipt Date: 20071221
  Transmission Date: 20080405
  Serious: Yes (Hospitalization)
  Sender: FDA-Public Use
  Company Number: B0498906A

PATIENT
  Age: 44 Year
  Sex: Male
  Weight: 64 kg

DRUGS (3)
  1. PAXIL [Suspect]
     Indication: DEPRESSION
     Dosage: 40MG PER DAY
     Route: 048
     Dates: end: 20070831
  2. ZYLORIC [Concomitant]
     Dosage: 200MG PER DAY
     Route: 048
     Dates: end: 20070831
  3. FENOFIBRATE [Concomitant]
     Route: 048
     Dates: end: 20070831

REACTIONS (4)
  - CONVULSION [None]
  - DEPRESSED LEVEL OF CONSCIOUSNESS [None]
  - DRUG WITHDRAWAL SYNDROME [None]
  - STUPOR [None]
